FAERS Safety Report 17020338 (Version 1)
Quarter: 2019Q4

REPORT INFORMATION
  Report Type: Report from Study
  Country: US (occurrence: US)
  Receive Date: 20191112
  Receipt Date: 20191112
  Transmission Date: 20200122
  Serious: Yes (Hospitalization)
  Sender: FDA-Public Use
  Company Number: US-ROCHE-2461885

PATIENT
  Sex: Male

DRUGS (1)
  1. VENCLEXTA [Suspect]
     Active Substance: VENETOCLAX
     Indication: B-CELL LYMPHOMA
     Dosage: WITH MEAL AND WATER AT APPROXIMATELY THE SAME TIME EACH DAY
     Route: 048

REACTIONS (4)
  - Dizziness [Unknown]
  - Spinal fracture [Unknown]
  - Fall [Unknown]
  - Constipation [Unknown]
